FAERS Safety Report 9485314 (Version 1)
Quarter: 2013Q3

REPORT INFORMATION
  Report Type: Spontaneous
  Country: US (occurrence: US)
  Receive Date: 20130828
  Receipt Date: 20130828
  Transmission Date: 20140515
  Serious: Yes (Other)
  Sender: FDA-Public Use
  Company Number: US-B.I. PHARMACEUTICALS,INC./RIDGEFIELD-2013-BI-26129BP

PATIENT
  Sex: Male

DRUGS (9)
  1. MIRAPEX [Suspect]
     Indication: RESTLESS LEGS SYNDROME
     Dosage: 0.5 MG
     Route: 048
     Dates: start: 2010
  2. PRILOSEC [Concomitant]
     Indication: DYSPEPSIA
     Route: 048
  3. NEURONTIN [Concomitant]
     Dosage: 3200 MG
     Route: 048
  4. TRICOR [Concomitant]
     Dosage: 145 MG
     Route: 048
  5. LIPITOR [Concomitant]
     Indication: BLOOD CHOLESTEROL INCREASED
     Dosage: 40 MG
     Route: 048
  6. PLAVIX [Concomitant]
     Dosage: 75 MG
     Route: 048
  7. CARVEDILOL [Concomitant]
     Dosage: 6.25 MG
     Route: 048
  8. LISINO/HCTZ [Concomitant]
     Indication: HYPERTENSION
     Dosage: STRENGTH: 10/12.5; DAILY DOSE: 10/12.5
     Route: 048
  9. ASPIRIN [Concomitant]
     Dosage: 325 MG
     Route: 048

REACTIONS (4)
  - Cerebrovascular accident [Recovered/Resolved with Sequelae]
  - Transient ischaemic attack [Recovered/Resolved]
  - Cerebral haemorrhage [Recovered/Resolved]
  - Amnesia [Not Recovered/Not Resolved]
